FAERS Safety Report 17440548 (Version 3)
Quarter: 2022Q2

REPORT INFORMATION
  Report Type: Report from Study
  Country: FR (occurrence: FR)
  Receive Date: 20200220
  Receipt Date: 20220624
  Transmission Date: 20220721
  Serious: Yes (Other)
  Sender: FDA-Public Use
  Company Number: FR-VIIV HEALTHCARE LIMITED-B0652863B

PATIENT

DRUGS (4)
  1. LAMIVUDINE AND ZIDOVUDINE [Suspect]
     Active Substance: LAMIVUDINE\ZIDOVUDINE
     Indication: HIV infection
     Dosage: 2 DF (TABLET)
     Route: 048
     Dates: start: 20090623
  2. ZIDOVUDINE [Suspect]
     Active Substance: ZIDOVUDINE
     Indication: HIV infection
     Dosage: UNK (1 MG/KG/HR)
     Route: 042
     Dates: start: 20091220, end: 20091220
  3. NORVIR [Suspect]
     Active Substance: RITONAVIR
     Indication: HIV infection
     Dosage: 200 MG
     Route: 048
     Dates: start: 20090623
  4. INVIRASE [Suspect]
     Active Substance: SAQUINAVIR MESYLATE
     Indication: HIV infection
     Dosage: 2000 MG
     Route: 048
     Dates: start: 20090623

REACTIONS (7)
  - Hypoxia [Unknown]
  - Placental insufficiency [Unknown]
  - Placental infarction [Unknown]
  - Placental necrosis [Unknown]
  - Placental disorder [Unknown]
  - Live birth [Unknown]
  - Exposure during pregnancy [Unknown]

NARRATIVE: CASE EVENT DATE: 20090101
